FAERS Safety Report 15207881 (Version 1)
Quarter: 2018Q4

REPORT INFORMATION
  Report Type: Report from Study
  Country: IT (occurrence: IT)
  Receive Date: 20180727
  Receipt Date: 20180727
  Transmission Date: 20190204
  Serious: Yes (Hospitalization, Other)
  Sender: FDA-Public Use
  Company Number: IT-PFIZER INC-2015301177

PATIENT
  Age: 69 Year
  Sex: Female
  Weight: 57 kg

DRUGS (26)
  1. ZALTRAP [Suspect]
     Active Substance: ZIV-AFLIBERCEPT
     Dosage: 244 MG, CYCLIC
     Route: 041
     Dates: start: 20150609, end: 20150609
  2. DECADRON [Concomitant]
     Active Substance: DEXAMETHASONE
     Indication: PROPHYLAXIS
     Dosage: 4 DF, UNK
     Route: 042
     Dates: start: 20150609
  3. LORAZEPAM. [Concomitant]
     Active Substance: LORAZEPAM
     Dosage: UNK
     Dates: start: 2005
  4. IRINOTECAN FRESENIUS KABI [Suspect]
     Active Substance: IRINOTECAN
     Indication: COLORECTAL CANCER
     Dosage: 140 MG/M2, CYCLIC
     Route: 041
     Dates: start: 20150609, end: 20150812
  5. FLUOROURACIL. [Suspect]
     Active Substance: FLUOROURACIL
     Dosage: 480 MG, CYCLIC
     Route: 040
     Dates: start: 20150812, end: 20150812
  6. ATROPINA SOLFATO S.A.L.F [Concomitant]
     Indication: PROPHYLAXIS
  7. VENLAFAXINE [Concomitant]
     Active Substance: VENLAFAXINE HYDROCHLORIDE
     Indication: PROPHYLAXIS
     Dosage: UNK
     Dates: start: 20150709
  8. LEVOLEUCOVORIN CALCIUM. [Suspect]
     Active Substance: LEVOLEUCOVORIN CALCIUM
     Indication: COLORECTAL CANCER
     Dosage: 150 MG/M2, CYCLIC
     Route: 041
     Dates: start: 20150609, end: 20150812
  9. PANTOPRAZOLE [Concomitant]
     Active Substance: PANTOPRAZOLE
     Dosage: UNK
     Dates: start: 20150709
  10. IRINOTECAN HCL [Suspect]
     Active Substance: IRINOTECAN HYDROCHLORIDE
     Indication: COLORECTAL CANCER METASTATIC
     Dosage: 220 MG, CYCLIC
     Route: 041
     Dates: start: 20150812, end: 20150812
  11. IRINOTECAN HCL [Suspect]
     Active Substance: IRINOTECAN HYDROCHLORIDE
     Dosage: 230 MG, CYCLIC
     Route: 041
     Dates: start: 20150609, end: 20150609
  12. ZALTRAP [Suspect]
     Active Substance: ZIV-AFLIBERCEPT
     Indication: COLORECTAL CANCER METASTATIC
     Dosage: 4 MG/KG, CYCLIC
     Route: 041
     Dates: start: 20150609, end: 20150812
  13. LEUCOVORIN. [Suspect]
     Active Substance: LEUCOVORIN
     Indication: COLORECTAL CANCER METASTATIC
     Dosage: 240 MG, CYCLIC
     Route: 041
     Dates: start: 20150812, end: 20150812
  14. FLUOROURACIL. [Suspect]
     Active Substance: FLUOROURACIL
     Dosage: 3000 MG, CYCLIC
     Route: 041
     Dates: start: 20150609
  15. METOCLOPRAMIDE. [Concomitant]
     Active Substance: METOCLOPRAMIDE
     Indication: PROPHYLAXIS
     Dosage: UNK
     Dates: start: 20150729
  16. ZALTRAP [Suspect]
     Active Substance: ZIV-AFLIBERCEPT
     Dosage: 228 MG, CYCLIC
     Route: 041
     Dates: start: 20150812, end: 20150812
  17. LEUCOVORIN. [Suspect]
     Active Substance: LEUCOVORIN
     Dosage: 250 MG, CYCLIC
     Dates: start: 20150609, end: 20150906
  18. FLUOROURACIL. [Suspect]
     Active Substance: FLUOROURACIL
     Dosage: 2850 MG, CYCLIC
     Route: 041
     Dates: start: 20150812
  19. LEVOTHYROXINE. [Concomitant]
     Active Substance: LEVOTHYROXINE
     Dosage: UNK
     Dates: start: 1995
  20. FLUOROURACIL. [Suspect]
     Active Substance: FLUOROURACIL
     Indication: COLORECTAL CANCER METASTATIC
     Dosage: 500 MG, CYCLIC
     Route: 040
     Dates: start: 20150609, end: 20150609
  21. ALOXI [Concomitant]
     Active Substance: PALONOSETRON HYDROCHLORIDE
     Indication: ANTIEMETIC SUPPORTIVE CARE
     Dosage: 250 ?G, UNK
     Route: 041
     Dates: start: 20150609, end: 20150812
  22. ALOXI [Concomitant]
     Active Substance: PALONOSETRON HYDROCHLORIDE
     Indication: PROPHYLAXIS
  23. FLUOROURACIL ACCORD HEALTHCARE [Suspect]
     Active Substance: FLUOROURACIL
     Indication: COLORECTAL CANCER
     Dosage: 2100 MG/M2, CYCLIC
     Route: 041
     Dates: start: 20150609, end: 20150812
  24. ATROPINA SOLFATO S.A.L.F [Concomitant]
     Indication: ANTIEMETIC SUPPORTIVE CARE
     Dosage: 1 MG, UNK
     Route: 041
     Dates: start: 20150609, end: 20150812
  25. SEACOR [Concomitant]
     Active Substance: OMEGA-3 FATTY ACIDS
     Indication: PROPHYLAXIS
     Dosage: UNK
     Dates: start: 20150709
  26. DECADRON [Concomitant]
     Active Substance: DEXAMETHASONE
     Indication: ANTIEMETIC SUPPORTIVE CARE
     Dosage: 8 MG, UNK
     Route: 041
     Dates: start: 20150609, end: 20150812

REACTIONS (4)
  - Pyrexia [Recovered/Resolved]
  - Haemorrhoids [Recovered/Resolved]
  - Pyelonephritis [Recovered/Resolved]
  - Urinary tract infection [Recovered/Resolved]

NARRATIVE: CASE EVENT DATE: 20150815
